FAERS Safety Report 5156857-2 (Version None)
Quarter: 2006Q4

REPORT INFORMATION
  Report Type: 
  Country: None (occurrence: None)
  Receive Date: 20061115
  Receipt Date: 20061102
  Transmission Date: 20070319
  Serious: Yes (Life-Threatening)
  Sender: FDA-Public Use
  Company Number: 2006134275

PATIENT
  Age: 35 Year
  Sex: Male

DRUGS (6)
  1. DOXORUBICIN HCL [Suspect]
     Indication: SARCOMA
     Dosage: 33 MG, INTRAVENOUS
     Route: 042
     Dates: start: 20060814, end: 20060816
  2. IFOMIDE (IFOSFAMIDE0 [Suspect]
     Indication: SARCOMA
     Dosage: 3.3 GRAM, INTRAVENOUS
     Route: 042
     Dates: start: 20060814, end: 20060818
  3. HAROSMIN S (FOSFOMYCIN SODIUM) [Concomitant]
  4. MANNITOL [Concomitant]
  5. KYTRIL [Concomitant]
  6. MESNA [Concomitant]

REACTIONS (7)
  - AGITATION [None]
  - CARDIAC ARREST [None]
  - ENCEPHALOPATHY [None]
  - FALL [None]
  - LOSS OF CONSCIOUSNESS [None]
  - RESPIRATORY DEPRESSION [None]
  - TREMOR [None]
